FAERS Safety Report 17928170 (Version 6)
Quarter: 2021Q4

REPORT INFORMATION
  Report Type: Report from Study
  Country: JP (occurrence: None)
  Receive Date: 20200623
  Receipt Date: 20211213
  Transmission Date: 20220303
  Serious: Yes (Hospitalization)
  Sender: FDA-Public Use
  Company Number: JP-ROCHE-2627536

PATIENT
  Age: 64 Year
  Sex: Male
  Weight: 77.1 kg

DRUGS (8)
  1. ENTRECTINIB [Suspect]
     Active Substance: ENTRECTINIB
     Indication: Neoplasm
     Dosage: DATE OF LAST DOSE PRIOR TO AE: 10/MAY/2021
     Route: 048
     Dates: start: 20180515
  2. SENNOSIDES [Concomitant]
     Active Substance: SENNOSIDES
     Indication: Constipation
     Dates: start: 20180525
  3. FUROSEMIDE [Concomitant]
     Active Substance: FUROSEMIDE
     Indication: Oedema peripheral
     Dates: start: 20180711
  4. SODIUM PICOSULFATE [Concomitant]
     Active Substance: SODIUM PICOSULFATE
     Indication: Constipation
     Dosage: PROPER QUALITY
     Route: 048
     Dates: start: 20180711
  5. LOXOPROFEN SODIUM [Concomitant]
     Active Substance: LOXOPROFEN SODIUM
     Indication: Arthralgia
     Dates: start: 20190121
  6. REBAMIPIDE [Concomitant]
     Active Substance: REBAMIPIDE
     Dates: start: 20200121
  7. ESFLURBIPROFEN\HERBALS [Concomitant]
     Active Substance: ESFLURBIPROFEN\HERBALS
     Dates: start: 20191216
  8. ELIQUIS [Concomitant]
     Active Substance: APIXABAN
     Dates: start: 20210506

REACTIONS (2)
  - Osteoarthritis [Recovered/Resolved]
  - Nausea [Recovered/Resolved]

NARRATIVE: CASE EVENT DATE: 20191216
